FAERS Safety Report 8315616-X (Version None)
Quarter: 2012Q2

REPORT INFORMATION
  Report Type: 
  Country: None (occurrence: None)
  Receive Date: 20120426
  Receipt Date: 20120425
  Transmission Date: 20120825
  Serious: Yes (Hospitalization, Other)
  Sender: FDA-Public Use
  Company Number: DE-ROCHE-1063291

PATIENT
  Age: 47 Year
  Sex: Male

DRUGS (4)
  1. XELODA [Suspect]
     Route: 048
     Dates: start: 20110901, end: 20110926
  2. XELODA [Suspect]
     Indication: COLON CANCER
     Route: 048
     Dates: end: 20110818
  3. XELODA [Suspect]
     Route: 048
     Dates: start: 20111121
  4. OXALIPLATIN [Suspect]
     Indication: COLON CANCER
     Dates: end: 20110818

REACTIONS (4)
  - COLONIC STENOSIS [None]
  - HEPATECTOMY [None]
  - INCISIONAL HERNIA [None]
  - NEUROPATHY PERIPHERAL [None]
